FAERS Safety Report 23524932 (Version 2)
Quarter: 2024Q1

REPORT INFORMATION
  Report Type: Report from Study
  Country: US (occurrence: US)
  Receive Date: 20240215
  Receipt Date: 20240320
  Transmission Date: 20240410
  Serious: Yes (Other)
  Sender: FDA-Public Use
  Company Number: US-TAKEDA-2023TUS122396

PATIENT
  Sex: Female
  Weight: 130 kg

DRUGS (45)
  1. HUMAN IMMUNOGLOBULIN G [Suspect]
     Active Substance: HUMAN IMMUNOGLOBULIN G
     Indication: Immunodeficiency common variable
     Dosage: 50 GRAM, Q3WEEKS
     Route: 042
     Dates: start: 20231016
  2. HUMAN IMMUNOGLOBULIN G [Suspect]
     Active Substance: HUMAN IMMUNOGLOBULIN G
     Indication: Immunodeficiency common variable
     Dosage: 50 GRAM, Q3WEEKS
     Route: 042
     Dates: start: 20231016
  3. ASPIRIN [Concomitant]
     Active Substance: ASPIRIN
     Dosage: UNK
     Route: 065
  4. TYLENOL [Concomitant]
     Active Substance: ACETAMINOPHEN
     Dosage: UNK
     Route: 065
  5. AZELASTINE [Concomitant]
     Active Substance: AZELASTINE\AZELASTINE HYDROCHLORIDE
     Dosage: UNK
     Route: 065
  6. ALBUTEROL SULFATE [Concomitant]
     Active Substance: ALBUTEROL SULFATE
     Dosage: UNK
     Route: 065
  7. FLUTICASONE PROPIONATE [Concomitant]
     Active Substance: FLUTICASONE PROPIONATE
     Dosage: UNK
     Route: 065
  8. FLUOXETINE [Concomitant]
     Active Substance: FLUOXETINE HYDROCHLORIDE
     Dosage: UNK
     Route: 065
  9. CARVEDILOL [Concomitant]
     Active Substance: CARVEDILOL
     Dosage: UNK
     Route: 065
  10. TRIAMCINOLONE ACETONIDE [Concomitant]
     Active Substance: TRIAMCINOLONE ACETONIDE
     Dosage: UNK
     Route: 065
  11. BREZTRI [Concomitant]
     Active Substance: BUDESONIDE\FORMOTEROL\GLYCOPYRROLATE
     Dosage: UNK
     Route: 065
  12. HYDROCORTISONE [Concomitant]
     Active Substance: HYDROCORTISONE
     Dosage: UNK
     Route: 065
  13. SODIUM CHLORIDE [Concomitant]
     Active Substance: SODIUM CHLORIDE
     Dosage: UNK
     Route: 065
  14. FUROSEMIDE [Concomitant]
     Active Substance: FUROSEMIDE
     Dosage: UNK
     Route: 065
  15. PREDNISONE [Concomitant]
     Active Substance: PREDNISONE
     Dosage: UNK
     Route: 065
  16. TIZANIDINE [Concomitant]
     Active Substance: TIZANIDINE
     Dosage: UNK
     Route: 065
  17. CETIRIZINE [Concomitant]
     Active Substance: CETIRIZINE HYDROCHLORIDE
     Dosage: UNK
     Route: 065
  18. VALACYCLOVIR [Concomitant]
     Active Substance: VALACYCLOVIR HYDROCHLORIDE
     Dosage: UNK
     Route: 065
  19. COENZYME Q10 [Concomitant]
     Active Substance: DIETARY SUPPLEMENT\UBIDECARENONE
     Dosage: UNK
     Route: 065
  20. BENZONATATE [Concomitant]
     Active Substance: BENZONATATE
     Dosage: UNK
     Route: 065
  21. MONTELUKAST SODIUM [Concomitant]
     Active Substance: MONTELUKAST SODIUM
     Dosage: UNK
     Route: 065
  22. TRAZODONE [Concomitant]
     Active Substance: TRAZODONE HYDROCHLORIDE
     Dosage: UNK
     Route: 065
  23. Nac [Concomitant]
     Dosage: UNK
     Route: 065
  24. FISH OIL [Concomitant]
     Active Substance: FISH OIL
     Dosage: UNK
     Route: 065
  25. NYSTATIN [Concomitant]
     Active Substance: NYSTATIN
     Dosage: UNK
     Route: 065
  26. IBUPROFEN [Concomitant]
     Active Substance: IBUPROFEN
     Dosage: UNK
     Route: 065
  27. RISPERIDONE [Concomitant]
     Active Substance: RISPERIDONE
     Dosage: UNK
     Route: 065
  28. DICLOFENAC SODIUM [Concomitant]
     Active Substance: DICLOFENAC\DICLOFENAC SODIUM
     Dosage: UNK
     Route: 065
  29. GABAPENTIN [Concomitant]
     Active Substance: GABAPENTIN
     Dosage: UNK
     Route: 065
  30. MUPIROCIN [Concomitant]
     Active Substance: MUPIROCIN
     Dosage: UNK
     Route: 065
  31. CALCIUM CARBONATE [Concomitant]
     Active Substance: CALCIUM CARBONATE
     Dosage: UNK
     Route: 065
  32. ALPRAZOLAM [Concomitant]
     Active Substance: ALPRAZOLAM
     Dosage: UNK
     Route: 065
  33. POTASSIUM CHLORIDE [Concomitant]
     Active Substance: POTASSIUM CHLORIDE
     Dosage: UNK
     Route: 065
  34. ALBUTEROL\IPRATROPIUM [Concomitant]
     Active Substance: ALBUTEROL\IPRATROPIUM
     Dosage: UNK
     Route: 065
  35. MUCINEX [Concomitant]
     Active Substance: GUAIFENESIN
     Dosage: UNK
     Route: 065
  36. OXYGEN [Concomitant]
     Active Substance: OXYGEN
     Dosage: UNK
     Route: 065
  37. CARBAMAZEPINE [Concomitant]
     Active Substance: CARBAMAZEPINE
     Dosage: UNK
     Route: 065
  38. TIZANIDINE HYDROCHLORIDE [Concomitant]
     Active Substance: TIZANIDINE HYDROCHLORIDE
     Dosage: UNK
     Route: 065
  39. CETIRIZINE HCL [Concomitant]
     Active Substance: CETIRIZINE HYDROCHLORIDE
     Dosage: UNK
     Route: 065
  40. ESOMEPRAZOLE MAGNESIUM [Concomitant]
     Active Substance: ESOMEPRAZOLE\ESOMEPRAZOLE MAGNESIUM\ESOMEPRAZOLE MAGNESIUM DIHYDRATE
     Dosage: UNK
     Route: 065
  41. AZELASTINE HYDROCHLORIDE [Concomitant]
     Active Substance: AZELASTINE HYDROCHLORIDE
     Dosage: UNK
     Route: 065
  42. FLUOXETINE HYDROCHLORIDE [Concomitant]
     Active Substance: FLUOXETINE HYDROCHLORIDE
     Dosage: UNK
     Route: 065
  43. TRAZODONE HCL [Concomitant]
     Active Substance: TRAZODONE HYDROCHLORIDE
     Dosage: UNK
     Route: 065
  44. COENZYME Q10 [Concomitant]
     Active Substance: DIETARY SUPPLEMENT\UBIDECARENONE
     Dosage: UNK
     Route: 065
  45. TYLENOL ARTHRITIS PAIN [Concomitant]
     Active Substance: ACETAMINOPHEN
     Dosage: UNK
     Route: 065

REACTIONS (12)
  - Pneumonia [Unknown]
  - Chronic obstructive pulmonary disease [Unknown]
  - Fungal skin infection [Unknown]
  - Illness [Unknown]
  - White blood cell count increased [Unknown]
  - Upper respiratory tract infection [Unknown]
  - COVID-19 [Unknown]
  - Brain fog [Unknown]
  - Fibromyalgia [Unknown]
  - Influenza [Unknown]
  - Pyrexia [Unknown]
  - Fatigue [Unknown]
